FAERS Safety Report 8681909 (Version 3)
Quarter: 2013Q3

REPORT INFORMATION
  Report Type: Report from Study
  Country: DE (occurrence: DE)
  Receive Date: 20120725
  Receipt Date: 20130926
  Transmission Date: 20140515
  Serious: Yes (Life-Threatening, Hospitalization)
  Sender: FDA-Public Use
  Company Number: DE-ROCHE-1091523

PATIENT
  Age: 68 Year
  Sex: Male
  Weight: 130.5 kg

DRUGS (11)
  1. METHOXY POLYETHYLENE GLYCOL-EPOETIN BETA [Suspect]
     Indication: NEPHROGENIC ANAEMIA
     Dosage: ON 19/MAY/2012, LAST DOSE PRIOR TO SAE.
     Route: 042
     Dates: start: 20111229
  2. IRON (III) HYDROXIDE-SUCROSE COMPLEX [Concomitant]
  3. BISOPROLOL [Concomitant]
     Route: 065
     Dates: start: 20111027
  4. OLMESARTAN [Concomitant]
     Dosage: 20/5 MG
     Route: 065
     Dates: start: 20110221
  5. ALISKIREN [Concomitant]
     Route: 065
     Dates: start: 20110414
  6. MOXONIDIN [Concomitant]
     Route: 065
     Dates: start: 20110524
  7. TORASEMIDE [Concomitant]
     Route: 065
     Dates: start: 20110512
  8. SIMVASTATIN [Concomitant]
     Route: 065
     Dates: start: 20100316
  9. PANTOPRAZOLE [Concomitant]
     Route: 065
     Dates: start: 20111206
  10. SEVELAMER [Concomitant]
     Route: 065
     Dates: start: 20111206
  11. CALCITROL [Concomitant]
     Route: 065
     Dates: start: 20120215

REACTIONS (3)
  - Craniocerebral injury [Recovered/Resolved]
  - Syncope [Recovered/Resolved]
  - Fall [Unknown]
